FAERS Safety Report 11309597 (Version 1)
Quarter: 2015Q3

REPORT INFORMATION
  Report Type: Spontaneous
  Country: US (occurrence: US)
  Receive Date: 20150724
  Receipt Date: 20150724
  Transmission Date: 20151125
  Serious: No
  Sender: FDA-Public Use
  Company Number: US-009507513-1507USA005275

PATIENT
  Age: 32 Year
  Sex: Female
  Weight: 91.16 kg

DRUGS (1)
  1. NEXPLANON [Suspect]
     Active Substance: ETONOGESTREL
     Indication: CONTRACEPTION
     Dosage: 1 ROD EVERY 3 YEARS
     Route: 059
     Dates: start: 20150407, end: 20150616

REACTIONS (5)
  - Tenderness [Recovered/Resolved]
  - Fibrosis [Recovered/Resolved]
  - Erythema [Recovered/Resolved]
  - Swelling [Recovered/Resolved]
  - Injection site abscess [Recovered/Resolved]

NARRATIVE: CASE EVENT DATE: 2015
